FAERS Safety Report 6220485-8 (Version None)
Quarter: 2009Q2

REPORT INFORMATION
  Report Type: 
  Country: None (occurrence: None)
  Receive Date: 20090610
  Receipt Date: 20090525
  Transmission Date: 20091009
  Serious: Yes (Hospitalization, Other)
  Sender: FDA-Public Use
  Company Number: SE-PFIZER INC-2009214264

PATIENT
  Sex: Male

DRUGS (7)
  1. ZYVOXID [Suspect]
     Indication: INFECTION
     Dosage: 600 MG, 2X/DAY
     Route: 048
     Dates: start: 20090107, end: 20090504
  2. PARAFLEX [Concomitant]
     Dosage: UNK
  3. DEXOFEN ^ASTRA^ [Concomitant]
     Dosage: UNK
  4. PAMOL [Concomitant]
     Dosage: UNK
  5. COZAAR [Concomitant]
     Dosage: UNK
  6. CHAMPIX [Concomitant]
     Dosage: UNK
  7. CALCICHEW-D3 [Concomitant]

REACTIONS (8)
  - ANAEMIA [None]
  - FEELING COLD [None]
  - HYPOAESTHESIA [None]
  - HYPOKINESIA [None]
  - MUSCLE SPASMS [None]
  - PAIN IN EXTREMITY [None]
  - SKIN BURNING SENSATION [None]
  - VISION BLURRED [None]
